FAERS Safety Report 22081060 (Version 2)
Quarter: 2023Q1

REPORT INFORMATION
  Report Type: Spontaneous
  Country: US (occurrence: US)
  Receive Date: 20230309
  Receipt Date: 20230323
  Transmission Date: 20230418
  Serious: Yes (Other)
  Sender: FDA-Public Use
  Company Number: US-TEVA-2023-US-2862956

PATIENT
  Age: 51 Year
  Sex: Male

DRUGS (9)
  1. PREDNISONE [Suspect]
     Active Substance: PREDNISONE
     Indication: Immunosuppressant drug therapy
     Dosage: 10 MILLIGRAM DAILY; ONCE A DAY
     Route: 065
  2. PREDNISONE [Suspect]
     Active Substance: PREDNISONE
     Dosage: 5 MG EVERY OTHER DAY
     Route: 065
  3. PREDNISOLONE [Suspect]
     Active Substance: PREDNISOLONE
     Indication: Immunosuppressant drug therapy
     Dosage: 15 MG/DAY FOR 4 WEEKS
     Route: 065
  4. PREDNISOLONE [Suspect]
     Active Substance: PREDNISOLONE
     Dosage: FOLLOWED BY 2.5MG REDUCTION EVERY 4 WEEKS
     Route: 065
  5. PREDNISOLONE [Suspect]
     Active Substance: PREDNISOLONE
     Dosage: 10 MILLIGRAM DAILY; ONCE A DAY , MAINTENANCE DOSE AFTER REDUCTION
     Route: 065
  6. TACROLIMUS [Suspect]
     Active Substance: TACROLIMUS
     Indication: Immunosuppressant drug therapy
     Route: 065
  7. SIROLIMUS [Suspect]
     Active Substance: SIROLIMUS
     Indication: Immunosuppressant drug therapy
     Dosage: 1.5 MILLIGRAM DAILY; ONCE A DAY
     Route: 065
  8. Immune-globulin [Concomitant]
     Indication: Product used for unknown indication
     Dosage: 50 G EVERY 4 WEEK
     Route: 065
  9. DAPSONE [Concomitant]
     Active Substance: DAPSONE
     Indication: Antifungal prophylaxis
     Dosage: 50 MILLIGRAM DAILY; ONCE A DAY
     Route: 065

REACTIONS (5)
  - Cytomegalovirus infection [Recovered/Resolved]
  - Nocardiosis [Recovered/Resolved]
  - Pneumonia pseudomonal [Recovered/Resolved]
  - Clostridium difficile colitis [Recovered/Resolved]
  - Norovirus infection [Unknown]
